FAERS Safety Report 7359326-4 (Version None)
Quarter: 2011Q1

REPORT INFORMATION
  Report Type: 
  Country: None (occurrence: None)
  Receive Date: 20110317
  Receipt Date: 20090813
  Transmission Date: 20110831
  Serious: No
  Sender: FDA-Public Use
  Company Number: US-PFIZER INC-2009255242

PATIENT
  Age: 72 Year
  Sex: Female

DRUGS (3)
  1. NORVASC [Suspect]
  2. BENICAR [Suspect]
  3. TOPROL-XL [Suspect]

REACTIONS (1)
  - ALOPECIA [None]
